FAERS Safety Report 9712780 (Version 3)
Quarter: 2014Q1

REPORT INFORMATION
  Report Type: Report from Study
  Country: US (occurrence: US)
  Receive Date: 20131126
  Receipt Date: 20140214
  Transmission Date: 20141002
  Serious: Yes (Other)
  Sender: FDA-Public Use
  Company Number: US-ELI_LILLY_AND_COMPANY-US201206006402

PATIENT
  Age: 39 Year
  Sex: Male
  Weight: 127.44 kg

DRUGS (6)
  1. INSULIN BASAL ANALOG III (LY2605541) SUB [Suspect]
     Indication: DIABETES MELLITUS
     Dosage: 70 U, QD
     Route: 058
     Dates: start: 20120504, end: 20120603
  2. LISPRO [Suspect]
     Indication: DIABETES MELLITUS
     Dosage: CARB COUNT FOR DOSE, DAILY
     Route: 058
     Dates: start: 20120504, end: 20120604
  3. SIMVASTATIN [Concomitant]
     Indication: HYPERLIPIDAEMIA
     Dosage: UNK
     Dates: start: 2011, end: 20120620
  4. ASPIRIN [Concomitant]
     Indication: PROPHYLAXIS
     Dosage: UNK
     Dates: start: 2009
  5. EXCEDRIN [Concomitant]
  6. ALCOHOL [Concomitant]

REACTIONS (1)
  - Drug-induced liver injury [Recovered/Resolved]
